FAERS Safety Report 14664543 (Version 1)
Quarter: 2018Q1

REPORT INFORMATION
  Report Type: Spontaneous
  Country: US (occurrence: US)
  Receive Date: 20180321
  Receipt Date: 20180321
  Transmission Date: 20180509
  Serious: Yes (Hospitalization, Other)
  Sender: FDA-Public Use
  Company Number: US-MYLANLABS-2018M1016967

PATIENT
  Age: 40 Year
  Sex: Female

DRUGS (2)
  1. GANCICLOVIR. [Suspect]
     Active Substance: GANCICLOVIR
     Indication: CYTOMEGALOVIRUS OESOPHAGITIS
     Dosage: UNK
     Route: 065
  2. PANTOPRAZOLE [Concomitant]
     Active Substance: PANTOPRAZOLE
     Indication: CYTOMEGALOVIRUS OESOPHAGITIS
     Dosage: UNK
     Route: 042

REACTIONS (4)
  - Erosive oesophagitis [Recovered/Resolved]
  - Leukopenia [Unknown]
  - Cytomegalovirus oesophagitis [Recovered/Resolved]
  - Oesophageal perforation [Recovered/Resolved]
